FAERS Safety Report 5235457-X (Version None)
Quarter: 2007Q1

REPORT INFORMATION
  Report Type: 
  Country: None (occurrence: None)
  Receive Date: 20061208
  Receipt Date: 20060707
  Transmission Date: 20070707
  Serious: Yes (Other)
  Sender: FDA-Public Use
  Company Number: 2006UW13952

PATIENT
  Sex: Female

DRUGS (3)
  1. CRESTOR [Suspect]
  2. PRAVACHOL [Concomitant]
  3. LIPITOR /GB/ [Concomitant]

REACTIONS (1)
  - BRONCHITIS CHRONIC [None]
